FAERS Safety Report 5871363-5 (Version None)
Quarter: 2008Q3

REPORT INFORMATION
  Report Type: 
  Country: None (occurrence: None)
  Receive Date: 20080904
  Receipt Date: 20080904
  Transmission Date: 20090109
  Serious: No
  Sender: FDA-Public Use
  Company Number: None

PATIENT
  Sex: Female
  Weight: 54.4316 kg

DRUGS (1)
  1. VANOS [Suspect]
     Dosage: 1 TIME APPLIED TO FINGER + FINGER GOT MUCH WORSE - ALL RED + PUFFY
     Dates: start: 20080717

REACTIONS (1)
  - CONDITION AGGRAVATED [None]
